FAERS Safety Report 10041353 (Version 1)
Quarter: 2014Q1

REPORT INFORMATION
  Report Type: Spontaneous
  Country: US (occurrence: None)
  Receive Date: 20140326
  Receipt Date: 20140326
  Transmission Date: 20141002
  Serious: Yes (Other)
  Sender: FDA-Public Use
  Company Number: None

PATIENT
  Age: 31 Year
  Sex: Male

DRUGS (1)
  1. DIVALPROEX ER [Suspect]
     Indication: MOOD SWINGS
     Route: 048
     Dates: start: 20110301, end: 20140117

REACTIONS (6)
  - Leukopenia [None]
  - Neutropenia [None]
  - Aspartate aminotransferase increased [None]
  - Alanine aminotransferase increased [None]
  - Drug level increased [None]
  - Treatment noncompliance [None]
